FAERS Safety Report 18579973 (Version 1)
Quarter: 2020Q4

REPORT INFORMATION
  Report Type: Spontaneous
  Country: US (occurrence: US)
  Receive Date: 20201204
  Receipt Date: 20201204
  Transmission Date: 20210114
  Serious: No
  Sender: FDA-Public Use
  Company Number: US-GLAXOSMITHKLINE-US2020231846

PATIENT
  Age: 59 Year
  Sex: Female

DRUGS (4)
  1. NYSTATIN. [Suspect]
     Active Substance: NYSTATIN
     Indication: PRODUCT USED FOR UNKNOWN INDICATION
     Dosage: UNK
  2. DOXYCYCLINE. [Suspect]
     Active Substance: DOXYCYCLINE
     Indication: PRODUCT USED FOR UNKNOWN INDICATION
     Dosage: UNK
  3. BREO ELLIPTA [Suspect]
     Active Substance: FLUTICASONE FUROATE\VILANTEROL TRIFENATATE
     Indication: RESPIRATORY DISORDER PROPHYLAXIS
  4. BREO ELLIPTA [Suspect]
     Active Substance: FLUTICASONE FUROATE\VILANTEROL TRIFENATATE
     Indication: COVID-19 PROPHYLAXIS
     Dosage: UNK
     Dates: end: 202003

REACTIONS (5)
  - Bone operation [Unknown]
  - Candida infection [Not Recovered/Not Resolved]
  - Sinusitis [Unknown]
  - Product use in unapproved indication [Unknown]
  - Wrist surgery [Unknown]

NARRATIVE: CASE EVENT DATE: 202001
